FAERS Safety Report 24662039 (Version 6)
Quarter: 2025Q4

REPORT INFORMATION
  Report Type: Report from Study
  Country: EU (occurrence: EU)
  Receive Date: 20241125
  Receipt Date: 20251216
  Transmission Date: 20260117
  Serious: Yes (Hospitalization)
  Sender: ABBVIE
  Company Number: EU-ABBVIE-6019810

PATIENT
  Age: 76 Year
  Sex: Male

DRUGS (8)
  1. FOSCARBIDOPA\FOSLEVODOPA [Suspect]
     Active Substance: FOSCARBIDOPA\FOSLEVODOPA
     Indication: Parkinson^s disease
     Dosage: CRN: 0.40 ML/H; CR: 0.55 ML/H; CRH: 0.58 ML/H; ED: 0.20 ML
     Route: 058
     Dates: start: 20240117
  2. FOSCARBIDOPA\FOSLEVODOPA [Suspect]
     Active Substance: FOSCARBIDOPA\FOSLEVODOPA
     Dosage: CRN: 0.47 ML/H, CR: 0.55 ML/H, CRH: 0.58 ML/H
     Route: 058
  3. FOSCARBIDOPA\FOSLEVODOPA [Suspect]
     Active Substance: FOSCARBIDOPA\FOSLEVODOPA
     Dosage: CRN: 0.40 ML/H, CR: 0.55 ML/H, CRH: 0.61 ML/H, ED: 0.20 ML
     Route: 058
  4. FOSCARBIDOPA\FOSLEVODOPA [Suspect]
     Active Substance: FOSCARBIDOPA\FOSLEVODOPA
     Dosage: CRN: 0.4 ML/H; CR: 0.55 ML/H; CRH: 0.58 ML/H; ED: 0.20 ML
     Route: 058
  5. FOSCARBIDOPA\FOSLEVODOPA [Suspect]
     Active Substance: FOSCARBIDOPA\FOSLEVODOPA
     Dosage: LOW 0.47 AT NIGHT, BASE 0. 60, HIGH 0.61
     Route: 058
  6. FOSCARBIDOPA\FOSLEVODOPA [Suspect]
     Active Substance: FOSCARBIDOPA\FOSLEVODOPA
     Dosage: CRN: 0.4 ML/H; CR: 0.55 ML/H; CRH: 0.58 ML/H; ED: 0.2ML
     Route: 058
  7. FOSCARBIDOPA\FOSLEVODOPA [Suspect]
     Active Substance: FOSCARBIDOPA\FOSLEVODOPA
     Dosage: CRN:0.40ML/H, CR:0.57ML/H, CRH:0.59ML/H, ED:0.20ML, SD:0.30ML
     Route: 058
     Dates: start: 2025
  8. OPICAPONE [Suspect]
     Active Substance: OPICAPONE
     Indication: Product used for unknown indication
     Route: 065
     Dates: start: 2025

REACTIONS (15)
  - Pyrexia [Recovering/Resolving]
  - Infusion site inflammation [Recovering/Resolving]
  - Polyneuropathy [Not Recovered/Not Resolved]
  - Infusion site infection [Unknown]
  - Hypokinesia [Not Recovered/Not Resolved]
  - Fatigue [Unknown]
  - Infusion site abscess [Recovered/Resolved]
  - Device issue [Unknown]
  - Panic reaction [Unknown]
  - Infusion site discomfort [Unknown]
  - Infusion site haemorrhage [Not Recovered/Not Resolved]
  - Immobile [Unknown]
  - Infusion site irritation [Unknown]
  - Drug intolerance [Not Recovered/Not Resolved]
  - Eczema [Not Recovered/Not Resolved]

NARRATIVE: CASE EVENT DATE: 20240101
